FAERS Safety Report 9624600 (Version 2)
Quarter: 2013Q4

REPORT INFORMATION
  Report Type: Spontaneous
  Country: US (occurrence: US)
  Receive Date: 20131015
  Receipt Date: 20131108
  Transmission Date: 20140711
  Serious: Yes (Death)
  Sender: FDA-Public Use
  Company Number: US-INCYTE CORPORATION-2013IN002394

PATIENT
  Age: 87 Year
  Sex: Female
  Weight: 58.96 kg

DRUGS (1)
  1. JAKAFI [Suspect]
     Dosage: 10 MG, BID
     Route: 048

REACTIONS (1)
  - Death [Fatal]
